FAERS Safety Report 18540237 (Version 1)
Quarter: 2020Q4

REPORT INFORMATION
  Report Type: Spontaneous
  Country: US (occurrence: US)
  Receive Date: 20201124
  Receipt Date: 20201124
  Transmission Date: 20210114
  Serious: Yes (Hospitalization)
  Sender: FDA-Public Use
  Company Number: None

PATIENT
  Sex: Female

DRUGS (8)
  1. ARIPIPRAZOLE TAB 5MG [Concomitant]
     Dates: start: 20201119
  2. LANTUS SOLOS INJ 100/ML [Concomitant]
     Dates: start: 20201109
  3. NOVOLOG IN PEN FIL [Concomitant]
     Dates: start: 20201110
  4. FORTEO [Suspect]
     Active Substance: TERIPARATIDE
     Indication: OSTEOPOROSIS
     Route: 058
     Dates: start: 20191025
  5. BUPROPION HCL TAB300MG XL [Concomitant]
     Dates: start: 20201119
  6. CEPHALEXIN CAP 500MG [Concomitant]
     Dates: start: 20201120
  7. CEPHALEXIN CAP 500MG [Concomitant]
     Dates: start: 20201116
  8. SIMVASTATIN TAB 20MG [Concomitant]
     Dates: start: 20201021

REACTIONS (2)
  - Hospitalisation [None]
  - Therapy interrupted [None]
